FAERS Safety Report 10012527 (Version 1)
Quarter: 2014Q1

REPORT INFORMATION
  Report Type: Spontaneous
  Country: US (occurrence: US)
  Receive Date: 20140312
  Receipt Date: 20140312
  Transmission Date: 20141002
  Serious: No
  Sender: FDA-Public Use
  Company Number: US-PFIZER INC-2014068498

PATIENT
  Age: 13 Year
  Sex: Male
  Weight: 54.42 kg

DRUGS (2)
  1. CORTEF [Suspect]
     Indication: ADDISON^S DISEASE
     Dosage: UNK (10MG IN THE MORNING, 7.5MG IN THE AFTERNOON AND 5MG AT NIGHT), 3X/DAY
     Dates: start: 200905
  2. HUMALOG [Concomitant]
     Indication: DIABETES MELLITUS
     Dosage: 1.4 IU, HOURLY

REACTIONS (4)
  - Nausea [Unknown]
  - Vomiting [Unknown]
  - Blood glucose decreased [Unknown]
  - Drug screen negative [Unknown]
